FAERS Safety Report 8619228-X (Version None)
Quarter: 2012Q3

REPORT INFORMATION
  Report Type: 
  Country: None (occurrence: None)
  Receive Date: 20120824
  Receipt Date: 20120816
  Transmission Date: 20120928
  Serious: Yes (Hospitalization)
  Sender: FDA-Public Use
  Company Number: US-BAYER-2012-039075

PATIENT
  Age: 25 Year
  Sex: Female
  Weight: 72.562 kg

DRUGS (1)
  1. YAZ [Suspect]
     Dosage: UNK
     Dates: start: 20060501, end: 20060801

REACTIONS (3)
  - INJURY [None]
  - PAIN [None]
  - GALLBLADDER DISORDER [None]
